FAERS Safety Report 11025580 (Version 1)
Quarter: 2015Q2

REPORT INFORMATION
  Report Type: Spontaneous
  Country: US (occurrence: None)
  Receive Date: 20150413
  Receipt Date: 20150413
  Transmission Date: 20150821
  Serious: No
  Sender: FDA-Public Use
  Company Number: None

PATIENT
  Age: 59 Year
  Sex: Female
  Weight: 67.13 kg

DRUGS (14)
  1. TRAZODONE [Concomitant]
     Active Substance: TRAZODONE HYDROCHLORIDE
  2. BARLEY GRASS POWDER [Concomitant]
  3. HERBAL TEAS [Concomitant]
     Active Substance: HERBALS
  4. ORANGE SPICE SCENTED ANTIBACTERIAL HAND SANITIZER [Concomitant]
     Active Substance: ALCOHOL
  5. CLONAZAPAM [Concomitant]
  6. BEE POLLEN [Concomitant]
     Active Substance: BEE POLLEN
  7. PRIMROSE OIL [Concomitant]
  8. WHEAT. [Concomitant]
     Active Substance: WHEAT
  9. KRILL OIL [Concomitant]
     Active Substance: DIETARY SUPPLEMENT
  10. RASPBERRY ZINGER [Concomitant]
  11. REMERON [Concomitant]
     Active Substance: MIRTAZAPINE
  12. ALENDRONATE [Suspect]
     Active Substance: ALENDRONATE SODIUM
     Indication: OSTEOPOROSIS
     Dosage: 4 PILLS (IN BOX), TAKE ONE (1) BY MOUTH EVERYWEEK.  BY MOUTH
     Route: 048
     Dates: start: 20141222, end: 20141222
  13. OAT. [Concomitant]
     Active Substance: OAT
  14. CELESTIAL SEASONINGS [Concomitant]

REACTIONS (5)
  - Movement disorder [None]
  - Muscle spasms [None]
  - Bone pain [None]
  - Dyspnoea [None]
  - Dysstasia [None]

NARRATIVE: CASE EVENT DATE: 20141222
